FAERS Safety Report 4428075-4 (Version None)
Quarter: 2004Q3

REPORT INFORMATION
  Report Type: 
  Country: None (occurrence: None)
  Receive Date: 20040726
  Receipt Date: 20040520
  Transmission Date: 20050211
  Serious: No
  Sender: FDA-Public Use
  Company Number: USA030945989

PATIENT
  Age: 68 Year
  Sex: Female
  Weight: 62 kg

DRUGS (13)
  1. FORTEO [Suspect]
     Indication: OSTEOPOROSIS
     Dosage: 20 UG EVERY OTHER DAY
     Dates: start: 20030828
  2. METOPROLOL [Concomitant]
  3. FUROSEMIDE [Concomitant]
  4. VITAMIN E [Concomitant]
  5. NITRO PATCH (GLYCERYL [Concomitant]
  6. POTASSIUM [Concomitant]
  7. NORVASC [Concomitant]
  8. MIACALCIN [Concomitant]
  9. PRILOSEC [Concomitant]
  10. ZOCOR [Concomitant]
  11. CITRACAL + D [Concomitant]
  12. MULTI-VITAMIN [Concomitant]
  13. GLUCOSAMINE [Concomitant]

REACTIONS (6)
  - ABDOMINAL DISCOMFORT [None]
  - FATIGUE [None]
  - FEELING ABNORMAL [None]
  - INJECTION SITE ERYTHEMA [None]
  - INJECTION SITE HAEMORRHAGE [None]
  - NAUSEA [None]
